FAERS Safety Report 16458892 (Version 1)
Quarter: 2019Q2

REPORT INFORMATION
  Report Type: Spontaneous
  Country: US (occurrence: US)
  Receive Date: 20190620
  Receipt Date: 20190620
  Transmission Date: 20190711
  Serious: No
  Sender: FDA-Public Use
  Company Number: US-THERAPEUTICSMD-2019TMD00949

PATIENT
  Age: 74 Year
  Sex: Female
  Weight: 98.41 kg

DRUGS (1)
  1. IMVEXXY [Suspect]
     Active Substance: ESTRADIOL
     Indication: VULVOVAGINAL DRYNESS
     Dosage: 4 ?G, 2X/WEEK AT BEDTIME
     Route: 067
     Dates: start: 201904, end: 20190509

REACTIONS (4)
  - Feeling hot [Recovering/Resolving]
  - Headache [Recovered/Resolved]
  - Anxiety [Unknown]
  - Off label use [Recovered/Resolved]

NARRATIVE: CASE EVENT DATE: 201904
